FAERS Safety Report 4953510-2 (Version None)
Quarter: 2006Q1

REPORT INFORMATION
  Report Type: 
  Country: None (occurrence: None)
  Receive Date: 20060324
  Receipt Date: 20060127
  Transmission Date: 20060701
  Serious: Yes (Hospitalization)
  Sender: FDA-Public Use
  Company Number: JP-ROCHE-434567

PATIENT
  Age: 54 Year
  Sex: Male

DRUGS (6)
  1. TAMIFLU [Suspect]
     Route: 048
     Dates: start: 20060106, end: 20060115
  2. ADONA [Concomitant]
     Route: 048
     Dates: start: 20020623
  3. RIKAVERIN [Concomitant]
     Route: 048
     Dates: start: 20020623
  4. OMEPRAL [Concomitant]
     Route: 048
     Dates: start: 20020623
  5. LASIX [Concomitant]
     Route: 048
     Dates: start: 20020623
  6. ALDACTONE [Concomitant]
     Route: 048
     Dates: start: 20020623

REACTIONS (6)
  - AGGRESSION [None]
  - COMA HEPATIC [None]
  - DIARRHOEA [None]
  - EXCITABILITY [None]
  - HYPERAMMONAEMIA [None]
  - LOSS OF CONSCIOUSNESS [None]
